FAERS Safety Report 6965567-8 (Version None)
Quarter: 2010Q3

REPORT INFORMATION
  Report Type: 
  Country: None (occurrence: None)
  Receive Date: 20100903
  Receipt Date: 20100825
  Transmission Date: 20110219
  Serious: Yes (Other)
  Sender: FDA-Public Use
  Company Number: ZA-JNJCH-2010019029

PATIENT
  Sex: Male

DRUGS (2)
  1. BENYLIN FOUR FLU [Suspect]
     Indication: PRODUCT USED FOR UNKNOWN INDICATION
     Dosage: TEXT:18 TABS OVER 2/3 DAYS AS PRESCRIBED
     Route: 048
     Dates: start: 20100815, end: 20100817
  2. CAL-C-VITA [Concomitant]
     Indication: VITAMIN SUPPLEMENTATION
     Dosage: TEXT:UNSPECIFIED
     Route: 065

REACTIONS (6)
  - ANXIETY [None]
  - BLOOD PRESSURE INCREASED [None]
  - CHEST PAIN [None]
  - HEART RATE INCREASED [None]
  - PYREXIA [None]
  - RHINORRHOEA [None]
